FAERS Safety Report 16033651 (Version 1)
Quarter: 2019Q1

REPORT INFORMATION
  Report Type: Spontaneous
  Country: US (occurrence: US)
  Receive Date: 20190305
  Receipt Date: 20190305
  Transmission Date: 20190418
  Serious: No
  Sender: FDA-Public Use
  Company Number: US-IMPAX LABORATORIES, LLC-2018-IPXL-02514

PATIENT
  Age: 67 Year
  Sex: Male

DRUGS (5)
  1. RASAGILINE. [Concomitant]
     Active Substance: RASAGILINE
     Indication: PARKINSON^S DISEASE
     Dosage: 1 MG, ONCE A DAY
     Route: 048
  2. RYTARY [Suspect]
     Active Substance: CARBIDOPA\LEVODOPA
     Dosage: 61.25/ 245 MG, 2 CAPSULES FOUR TIME A DAY
     Route: 065
     Dates: start: 20180720
  3. PRAMIPEXOLE. [Concomitant]
     Active Substance: PRAMIPEXOLE
     Indication: PARKINSON^S DISEASE
     Dosage: 1MG, 4.5 DF, DAILY (2DF AT 6, 2DF AT 11 AND HALF AT NIGHT)
     Route: 048
  4. RYTARY [Suspect]
     Active Substance: CARBIDOPA\LEVODOPA
     Dosage: 61.25/ 245 MG, 4 CAPSULES FOUR TIME A DAY(06:00 AM, 11:00 AM, 04:00 PM AND 09:00 PM)
     Route: 065
     Dates: start: 20180717, end: 20180719
  5. RYTARY [Suspect]
     Active Substance: CARBIDOPA\LEVODOPA
     Indication: PARKINSON^S DISEASE
     Dosage: 48.75 /195 MG, 3 CAPSULES FOUR TIMES A DAY
     Route: 065
     Dates: start: 20180625, end: 20180716

REACTIONS (5)
  - Intentional product use issue [Unknown]
  - Balance disorder [Not Recovered/Not Resolved]
  - Judgement impaired [Not Recovered/Not Resolved]
  - Gait disturbance [Not Recovered/Not Resolved]
  - Drug effect incomplete [Unknown]

NARRATIVE: CASE EVENT DATE: 201806
